FAERS Safety Report 7904942-1 (Version None)
Quarter: 2011Q4

REPORT INFORMATION
  Report Type: 
  Country: None (occurrence: None)
  Receive Date: 20111109
  Receipt Date: 20111101
  Transmission Date: 20120403
  Serious: Yes (Hospitalization, Other)
  Sender: FDA-Public Use
  Company Number: PHEH2011US06519

PATIENT
  Sex: Female

DRUGS (22)
  1. GILENYA [Suspect]
     Indication: MULTIPLE SCLEROSIS
     Dosage: 0.5 MG, QD
     Route: 048
     Dates: start: 20110816
  2. LOVENOX [Concomitant]
     Dosage: UNK UKN, UNK
  3. COLACE [Concomitant]
     Dosage: 2 DF, QD
     Route: 048
  4. XANAX [Concomitant]
     Dosage: 0.25 MG, TID
     Route: 048
  5. XANAX [Concomitant]
     Dosage: 2 MG, QD
     Route: 048
  6. ATIVAN [Concomitant]
     Dosage: 0.5 MG, BID
     Route: 042
     Dates: start: 20110907
  7. CELEXA [Concomitant]
     Dosage: 20 MG, QD
     Route: 048
  8. FOLVITE [Concomitant]
     Dosage: 1 DF, QD
     Route: 048
  9. RISPERDAL [Concomitant]
     Dosage: UNK UKN, UNK
     Dates: end: 20110905
  10. ORTHO-NOVUM 7/7/7-28 [Concomitant]
     Dosage: 1 DF, QID
     Route: 048
  11. CYANOCOBALAMIN [Concomitant]
     Dosage: 1 ML, QD
     Route: 030
  12. XANAX [Concomitant]
     Dosage: 0.5 MG, TID
     Dates: start: 20110905
  13. PAXIL [Concomitant]
     Dosage: 20 MG, QD
     Route: 048
     Dates: end: 20110905
  14. DELTASONE [Concomitant]
     Dosage: 1 DF, QD
     Route: 048
  15. DEPAKOTE [Concomitant]
     Indication: PROPHYLAXIS
  16. PROTONIX [Concomitant]
     Dosage: 1 DF, QD
  17. PAXIL [Concomitant]
     Dosage: 40 MG, UNK
     Route: 048
  18. PROVIGIL [Concomitant]
     Dosage: 200 MG, QD
     Route: 048
  19. OSCAL 500-D [Concomitant]
     Dosage: 2 DF, BID
     Route: 047
  20. LEXAPRO [Concomitant]
     Dosage: UNK UKN, UNK
     Dates: start: 20110905, end: 20110907
  21. DEPAKOTE [Concomitant]
     Indication: PSYCHOTIC DISORDER
     Dosage: UNK UKN, UNK
     Dates: start: 20110906
  22. NUVIGIL [Concomitant]
     Dosage: 150 MG, QD
     Route: 048

REACTIONS (19)
  - PANIC ATTACK [None]
  - CENTRAL NERVOUS SYSTEM LESION [None]
  - DYSPHONIA [None]
  - SELF INJURIOUS BEHAVIOUR [None]
  - TREMOR [None]
  - HYPOKALAEMIA [None]
  - MULTIPLE SCLEROSIS RELAPSE [None]
  - ANXIETY [None]
  - MENTAL STATUS CHANGES [None]
  - CONSTIPATION [None]
  - THROMBOCYTOPENIA [None]
  - CONFUSIONAL STATE [None]
  - ABNORMAL BEHAVIOUR [None]
  - EMOTIONAL DISORDER [None]
  - CEREBRAL DISORDER [None]
  - LETHARGY [None]
  - COGNITIVE DISORDER [None]
  - VITAMIN D DEFICIENCY [None]
  - GAIT DISTURBANCE [None]
